FAERS Safety Report 7727080-X (Version None)
Quarter: 2011Q3

REPORT INFORMATION
  Report Type: 
  Country: None (occurrence: None)
  Receive Date: 20110902
  Receipt Date: 20110822
  Transmission Date: 20111222
  Serious: Yes (Other)
  Sender: FDA-Public Use
  Company Number: US-JNJFOC-20110411508

PATIENT
  Sex: Female

DRUGS (2)
  1. LISTERINE TOTAL CARE PLUS WHITENING [Suspect]
     Indication: DENTAL DISORDER PROPHYLAXIS
     Route: 048
     Dates: start: 20110411, end: 20110414
  2. MULTI-VITAMINS [Concomitant]
     Indication: PRODUCT USED FOR UNKNOWN INDICATION
     Route: 048

REACTIONS (3)
  - CHEMICAL BURN OF GASTROINTESTINAL TRACT [None]
  - CHEMICAL INJURY [None]
  - GINGIVAL PAIN [None]
